FAERS Safety Report 4728517-0 (Version None)
Quarter: 2005Q3

REPORT INFORMATION
  Report Type: 
  Country: None (occurrence: None)
  Receive Date: 20050729
  Receipt Date: 20050331
  Transmission Date: 20060218
  Serious: No
  Sender: FDA-Public Use
  Company Number: US-GLAXOSMITHKLINE-A0552151A

PATIENT
  Age: 60 Year
  Sex: Male

DRUGS (1)
  1. ZANTAC OTC [Suspect]
     Dosage: 300MG PER DAY
     Route: 048
     Dates: start: 19920101

REACTIONS (1)
  - DRUG INEFFECTIVE [None]
